FAERS Safety Report 4539239-3 (Version None)
Quarter: 2004Q4

REPORT INFORMATION
  Report Type: 
  Country: None (occurrence: None)
  Receive Date: 20041227
  Receipt Date: 20041227
  Transmission Date: 20050328
  Serious: No
  Sender: FDA-Public Use
  Company Number: None

PATIENT
  Age: 40 Year
  Sex: Female
  Weight: 56.6996 kg

DRUGS (3)
  1. NAPROXEN SODIUM [Suspect]
     Indication: DYSMENORRHOEA
     Dosage: 440 MG   1X   ORAL
     Route: 048
     Dates: start: 20041014, end: 20041014
  2. NAPROXEN SODIUM [Suspect]
     Indication: HEADACHE
     Dosage: 440 MG   1X   ORAL
     Route: 048
     Dates: start: 20041014, end: 20041014
  3. NUTROPIN AQ [Concomitant]

REACTIONS (2)
  - COAGULOPATHY [None]
  - CONJUNCTIVAL HAEMORRHAGE [None]
